FAERS Safety Report 9463700 (Version 1)
Quarter: 2013Q3

REPORT INFORMATION
  Report Type: Report from Study
  Country: US (occurrence: US)
  Receive Date: 20130819
  Receipt Date: 20130819
  Transmission Date: 20140515
  Serious: No
  Sender: FDA-Public Use
  Company Number: PHEH2013US017445

PATIENT
  Sex: Female

DRUGS (12)
  1. TASIGNA [Suspect]
     Indication: CHRONIC MYELOID LEUKAEMIA
     Dosage: 300 MG, BID
     Route: 048
     Dates: start: 201207
  2. LISINOPRIL [Concomitant]
  3. OXYBUTYNIN CHLORIDE [Concomitant]
  4. KLOR CON M10 [Concomitant]
  5. FUROSEMIDE [Concomitant]
  6. PROMETRIUM [Concomitant]
  7. DEXATRIM                           /00530801/ [Concomitant]
  8. MELATONIN [Concomitant]
  9. SIMETHICONE [Concomitant]
  10. DOCUSATE SODIUM [Concomitant]
  11. CALCIUM CITRATE W/VITAMIN D NOS [Concomitant]
  12. FEMRING [Concomitant]

REACTIONS (4)
  - Flatulence [Unknown]
  - Fatigue [Unknown]
  - Feeling hot [Unknown]
  - Flushing [Unknown]
